FAERS Safety Report 11771459 (Version 3)
Quarter: 2016Q1

REPORT INFORMATION
  Report Type: Spontaneous
  Country: CA (occurrence: CA)
  Receive Date: 20151124
  Receipt Date: 20160118
  Transmission Date: 20160525
  Serious: Yes (Hospitalization, Other)
  Sender: FDA-Public Use
  Company Number: CA-ROCHE-1665436

PATIENT
  Sex: Female

DRUGS (3)
  1. ZENHALE [Concomitant]
     Active Substance: FORMOTEROL FUMARATE\MOMETASONE FUROATE
  2. SALBUTAMOL [Concomitant]
     Active Substance: ALBUTEROL
  3. XOLAIR [Suspect]
     Active Substance: OMALIZUMAB
     Indication: ASTHMA
     Route: 058
     Dates: start: 20150506

REACTIONS (5)
  - Blood immunoglobulin E increased [Not Recovered/Not Resolved]
  - Asthma [Not Recovered/Not Resolved]
  - Adrenal insufficiency [Unknown]
  - Drug ineffective [Unknown]
  - Lung infection [Unknown]
